FAERS Safety Report 9134387 (Version 1)
Quarter: 2013Q1

REPORT INFORMATION
  Report Type: Spontaneous
  Country: BR (occurrence: BR)
  Receive Date: 20130304
  Receipt Date: 20130304
  Transmission Date: 20140127
  Serious: Yes (Other)
  Sender: FDA-Public Use
  Company Number: BR-ACCORD-016630

PATIENT
  Age: 34 Year
  Sex: Female
  Weight: 134.4 kg

DRUGS (10)
  1. DEXAMETHASONE [Concomitant]
     Route: 042
     Dates: start: 20121212, end: 20130103
  2. RANITIDINE [Concomitant]
     Route: 042
     Dates: start: 20121212, end: 20130103
  3. FUROSEMIDE [Concomitant]
     Route: 048
  4. ONDANSETRON [Concomitant]
     Route: 042
     Dates: start: 20121212, end: 20130103
  5. PACLITAXEL [Suspect]
     Indication: BREAST CANCER
     Dosage: FIRST CYCLE OF PACLITAXEL (175 MG/M2) STARTED ON 12-DEC-2012 AND SECOND CYCLE ON 03-JAN-2013
     Route: 042
     Dates: start: 20121212, end: 20130103
  6. DIPHENHYDRAMINE [Concomitant]
     Route: 042
     Dates: start: 20121212, end: 20130103
  7. OMEPRAZOLE [Concomitant]
     Route: 048
  8. HYDROCORTISONE [Concomitant]
     Route: 042
     Dates: start: 20121212, end: 20130103
  9. LOSARTAN [Concomitant]
     Route: 048
  10. PURAN T4 [Concomitant]
     Route: 048

REACTIONS (5)
  - Dyspnoea [Recovered/Resolved]
  - Paraesthesia [Recovered/Resolved]
  - Erythema [Recovered/Resolved]
  - Abdominal pain [Recovered/Resolved]
  - Back pain [Recovered/Resolved]
